FAERS Safety Report 18821374 (Version 2)
Quarter: 2022Q1

REPORT INFORMATION
  Report Type: Spontaneous
  Country: US (occurrence: US)
  Receive Date: 20210202
  Receipt Date: 20220321
  Transmission Date: 20220423
  Serious: Yes (Other)
  Sender: FDA-Public Use
  Company Number: US-MALLINCKRODT-C199900778

PATIENT
  Age: 36 Year
  Sex: Female

DRUGS (1)
  1. TECHNESCAN HDP [Suspect]
     Active Substance: TECHNETIUM TC-99M OXIDRONATE
     Indication: Bone scan
     Route: 042
     Dates: start: 19990804, end: 19990804

REACTIONS (1)
  - Cellulitis [Recovered/Resolved]

NARRATIVE: CASE EVENT DATE: 19990805
